FAERS Safety Report 4572459-0 (Version None)
Quarter: 2005Q1

REPORT INFORMATION
  Report Type: 
  Country: None (occurrence: None)
  Receive Date: 20050207
  Receipt Date: 20050128
  Transmission Date: 20050727
  Serious: Yes (Other)
  Sender: FDA-Public Use
  Company Number: US-ABBOTT-05P-163-0288570-00

PATIENT
  Sex: Female

DRUGS (9)
  1. HUMIRA [Suspect]
     Indication: RHEUMATOID ARTHRITIS
     Route: 058
     Dates: start: 20040813, end: 20040814
  2. HUMIRA [Suspect]
     Route: 058
     Dates: start: 20040827, end: 20040828
  3. BUCINDOLOL HYDROCHLORIDE [Concomitant]
     Indication: RHEUMATOID ARTHRITIS
     Route: 048
     Dates: start: 20000101
  4. HYDROCHLOROTHIAZIDE [Concomitant]
     Indication: HYPERTENSION
     Route: 048
     Dates: start: 20020101
  5. CLONIDINE [Concomitant]
     Indication: HYPERTENSION
     Route: 048
  6. KLONIPIN [Concomitant]
     Indication: DRUG USE FOR UNKNOWN INDICATION
     Route: 048
  7. NORMENSAL [Concomitant]
     Indication: CONTRACEPTION
     Route: 048
  8. NORMENSAL [Concomitant]
     Indication: MENSTRUATION IRREGULAR
  9. BENICAR [Concomitant]
     Indication: HYPERTENSION
     Route: 048

REACTIONS (4)
  - COUGH [None]
  - DYSPNOEA [None]
  - OEDEMA PERIPHERAL [None]
  - RALES [None]
